FAERS Safety Report 22175736 (Version 1)
Quarter: 2023Q2

REPORT INFORMATION
  Report Type: Spontaneous
  Country: US (occurrence: None)
  Receive Date: 20230404
  Receipt Date: 20230404
  Transmission Date: 20230721
  Serious: Yes (unspecified)
  Sender: FDA-Public Use
  Company Number: None

PATIENT
  Age: 67 Year
  Sex: Female
  Weight: 51.75 kg

DRUGS (7)
  1. NEOMYCIN AND POLYMYXIN B SULFATES AND HYDROCORTISONE [Suspect]
     Active Substance: HYDROCORTISONE\NEOMYCIN SULFATE\POLYMYXIN B SULFATE
     Indication: Otitis media
     Dosage: OTHER QUANTITY : 4 DROP(S);?FREQUENCY : 3 TIMES A DAY;?
     Route: 001
     Dates: start: 20230209, end: 20230223
  2. ALLEGRA [Concomitant]
  3. MONTELUKAST SODIUM [Concomitant]
     Active Substance: MONTELUKAST SODIUM
  4. famotadine [Concomitant]
  5. NASACORT [Concomitant]
     Active Substance: TRIAMCINOLONE ACETONIDE
  6. areds 2 vitamins calcium [Concomitant]
  7. D3 magnesium MSM [Concomitant]

REACTIONS (4)
  - Scab [None]
  - Ear pain [None]
  - Tinnitus [None]
  - Deafness [None]

NARRATIVE: CASE EVENT DATE: 20230223
